FAERS Safety Report 16163492 (Version 14)
Quarter: 2020Q2

REPORT INFORMATION
  Report Type: Spontaneous
  Country: CA (occurrence: CA)
  Receive Date: 20190405
  Receipt Date: 20200520
  Transmission Date: 20200713
  Serious: Yes (Life-Threatening, Hospitalization, Other)
  Sender: FDA-Public Use
  Company Number: CA-PFIZER INC-2019146789

PATIENT
  Age: 60 Year
  Sex: Male
  Weight: 50 kg

DRUGS (129)
  1. CLOTRIMAZOLE W/HYDROCORTISONE [Suspect]
     Active Substance: CLOTRIMAZOLE\HYDROCORTISONE
     Indication: SCROTAL SWELLING
     Dosage: UNK UNK, WEEKLY
     Route: 065
  2. PSYLLIUM [PLANTAGO AFRA] [Suspect]
     Active Substance: PLANTAGO AFRA SEED
     Dosage: 1 DF, ALTERNATE DAY
     Route: 065
  3. FLORINEF ACETATE [Suspect]
     Active Substance: FLUDROCORTISONE ACETATE
     Dosage: 0.1 MILLIGRAM, QD
     Route: 065
  4. MIDODRINE HYDROCHLORIDE. [Suspect]
     Active Substance: MIDODRINE HYDROCHLORIDE
     Dosage: 5 MG, 1X/DAY
     Route: 065
  5. VITAMIN D3 [Suspect]
     Active Substance: CHOLECALCIFEROL
     Dosage: 1000 INTERNATIONAL UNIT, QD
     Route: 065
  6. LODALIS [Suspect]
     Active Substance: COLESEVELAM HYDROCHLORIDE
     Dosage: 625 MG, ONCE DAILY
     Route: 065
  7. CALCIUM ASCORBATE [Suspect]
     Active Substance: CALCIUM ASCORBATE
     Dosage: 600 MILLIGRAM, QD
     Route: 065
  8. BIOTENE [FLUORINE;XYLITOL] [Suspect]
     Active Substance: SODIUM FLUORIDE\SODIUM MONOFLUOROPHOSPHATE
     Dosage: UNK UNK, 2X/DAY
     Route: 048
  9. BIOTENE [FLUORINE;XYLITOL] [Suspect]
     Active Substance: SODIUM FLUORIDE\SODIUM MONOFLUOROPHOSPHATE
     Dosage: UNK
     Route: 065
  10. HYALURONATE SODIUM [Suspect]
     Active Substance: HYALURONATE SODIUM
     Dosage: UNK, 3X/DAY
     Route: 047
  11. LENALIDOMIDE [Suspect]
     Active Substance: LENALIDOMIDE
     Indication: PLASMA CELL MYELOMA
     Dosage: UNK, CYCLIC
     Route: 048
  12. ASCORBIC ACID. [Suspect]
     Active Substance: ASCORBIC ACID
     Dosage: 600 MILLIGRAM, QD
     Route: 065
  13. CALCIUM ASCORBATE/VITAMIN B COMPLEX [Suspect]
     Active Substance: CALCIUM ASCORBATE\VITAMIN B COMPLEX
     Dosage: 600 MILLIGRAM, QD
     Route: 065
  14. FLUDROCORTISONE ACETATE. [Suspect]
     Active Substance: FLUDROCORTISONE ACETATE
     Dosage: 1 MG, 1X/DAY
     Route: 065
  15. ACETYLSALICYLIC ACID [Suspect]
     Active Substance: ASPIRIN
     Dosage: 81 MG, 1X/DAY
     Route: 048
  16. PLANTAGO PSYLLIUM [Suspect]
     Active Substance: PLANTAGO INDICA WHOLE
     Dosage: UNK UNK, BID
     Route: 065
  17. CYANOCOBALAMIN. [Suspect]
     Active Substance: CYANOCOBALAMIN
     Dosage: UNK, QD
     Route: 048
  18. CYANOCOBALAMIN. [Suspect]
     Active Substance: CYANOCOBALAMIN
     Dosage: 1000 MICROGRAM, QD
     Route: 048
  19. OTRIVIN SALINE [Suspect]
     Active Substance: SODIUM CHLORIDE
     Dosage: UNK UNK, 3X/DAY
     Route: 065
  20. CLOTRIMAZOLE W/HYDROCORTISONE [Suspect]
     Active Substance: CLOTRIMAZOLE\HYDROCORTISONE
     Dosage: UNK
     Route: 065
  21. MIDODRINE HYDROCHLORIDE. [Suspect]
     Active Substance: MIDODRINE HYDROCHLORIDE
     Dosage: 5 MG, ONCE DAILY
     Route: 065
  22. TUMS [CALCIUM CARBONATE;MAGNESIUM CARBONATE;MAGNESIUM TRISILICATE] [Suspect]
     Active Substance: CALCIUM CARBONATE\MAGNESIUM CARBONATE\MAGNESIUM TRISILICATE
     Indication: GASTROINTESTINAL DISORDER
     Dosage: UNK
     Route: 065
  23. HYALURONATE SODIUM [Suspect]
     Active Substance: HYALURONATE SODIUM
     Dosage: UNK UNK, TID
     Route: 050
  24. LEVOTHYROXINE. [Suspect]
     Active Substance: LEVOTHYROXINE
     Dosage: 112 UG, 1X/DAY
     Route: 065
  25. LEVOTHYROXINE. [Suspect]
     Active Substance: LEVOTHYROXINE
     Dosage: 112 UG
     Route: 048
  26. LEVOTHYROXINE. [Suspect]
     Active Substance: LEVOTHYROXINE
     Dosage: UNK
     Route: 048
  27. CAFFEINE. [Suspect]
     Active Substance: CAFFEINE
     Dosage: 81 MILLIGRAM, QD
     Route: 065
  28. PANTOPRAZOLE [Suspect]
     Active Substance: PANTOPRAZOLE
     Dosage: 40 MG, 1X/DAY
     Route: 048
  29. PANTOPRAZOLE [Suspect]
     Active Substance: PANTOPRAZOLE
     Dosage: UNK
     Route: 065
  30. CYANOCOBALAMIN. [Suspect]
     Active Substance: CYANOCOBALAMIN
     Dosage: 1000 MILLIGRAM, QD
     Route: 048
  31. LOPERAMIDE HYDROCHLORIDE W/SIMETICONE [Suspect]
     Active Substance: DIMETHICONE\LOPERAMIDE HYDROCHLORIDE
     Indication: DIARRHOEA
     Dosage: 1 DF, DAILY
     Route: 048
  32. LOPERAMIDE HYDROCHLORIDE W/SIMETICONE [Suspect]
     Active Substance: DIMETHICONE\LOPERAMIDE HYDROCHLORIDE
     Dosage: UNK
     Route: 065
  33. LOPERAMIDE HYDROCHLORIDE W/SIMETICONE [Suspect]
     Active Substance: DIMETHICONE\LOPERAMIDE HYDROCHLORIDE
     Dosage: UNK
     Route: 065
  34. DEXAMETHASONE. [Suspect]
     Active Substance: DEXAMETHASONE
     Dosage: 2 MG, UNK
     Route: 065
  35. REVLIMID [Suspect]
     Active Substance: LENALIDOMIDE
     Dosage: 10 MG
     Route: 048
  36. VITAMIN D3 [Suspect]
     Active Substance: CHOLECALCIFEROL
     Dosage: 1000 INTERNATIONAL UNIT, QD
     Route: 048
  37. VITAMIN D3 [Suspect]
     Active Substance: CHOLECALCIFEROL
     Dosage: 1000 INTERNATIONAL UNIT, QD
     Route: 065
  38. SEA WATER [Suspect]
     Active Substance: SEA WATER
     Dosage: UNK UNK, QD
     Route: 047
  39. FLUORINE W/XYLITOL [Suspect]
     Active Substance: FLUORINE\XYLITOL
     Dosage: UNK, DAILY
     Route: 048
  40. GLYCERINE [Suspect]
     Active Substance: GLYCERIN
     Dosage: UNK
     Route: 048
  41. BIOTENE [FLUORINE;XYLITOL] [Suspect]
     Active Substance: SODIUM FLUORIDE\SODIUM MONOFLUOROPHOSPHATE
     Dosage: UNK, QD
     Route: 048
  42. HYALURONATE SODIUM [Suspect]
     Active Substance: HYALURONATE SODIUM
     Dosage: 3 GTT, 1X/DAY
     Route: 047
  43. COLESEVELAM HCL [Suspect]
     Active Substance: COLESEVELAM HYDROCHLORIDE
     Dosage: 625 MG, 1X/DAY
     Route: 065
  44. PSYLLIUM HUSK [PLANTAGO OVATA HUSK] [Suspect]
     Active Substance: HERBALS\PLANTAGO OVATA SEED COAT
     Dosage: UNK
     Route: 065
  45. FLUDROCORTISONE [Suspect]
     Active Substance: FLUDROCORTISONE
     Dosage: 0.1 MILLIGRAM, QD
     Route: 065
  46. LEVOTHYROXINE. [Suspect]
     Active Substance: LEVOTHYROXINE
     Dosage: 112 UG, 1X/DAY
     Route: 048
  47. LEVOTHYROXINE. [Suspect]
     Active Substance: LEVOTHYROXINE
     Dosage: 112 UG, 1X/DAY
  48. FLUDROCORTISONE ACETATE. [Suspect]
     Active Substance: FLUDROCORTISONE ACETATE
     Dosage: UNK
     Route: 065
  49. FLUDROCORTISONE ACETATE. [Suspect]
     Active Substance: FLUDROCORTISONE ACETATE
     Dosage: 0.1 MILLIGRAM, QD
     Route: 065
  50. CALCIUM CARBONATE. [Suspect]
     Active Substance: CALCIUM CARBONATE
     Indication: GASTROINTESTINAL DISORDER
     Dosage: UNK
     Route: 065
  51. CALCIUM [Suspect]
     Active Substance: CALCIUM
     Dosage: 600 MILLIGRAM, QD
     Route: 065
  52. LOPERAMIDE HYDROCHLORIDE W/SIMETICONE [Suspect]
     Active Substance: DIMETHICONE\LOPERAMIDE HYDROCHLORIDE
     Dosage: UNK
     Route: 065
  53. LOPERAMIDE HYDROCHLORIDE W/SIMETICONE [Suspect]
     Active Substance: DIMETHICONE\LOPERAMIDE HYDROCHLORIDE
     Route: 048
  54. VITAMIN B12 [Suspect]
     Active Substance: CYANOCOBALAMIN
     Dosage: 1000 MICROGRAM, QD
     Route: 048
  55. VITAMIN C [Suspect]
     Active Substance: ASCORBIC ACID
     Dosage: 600 MG, ONCE DAILY
     Route: 065
  56. ASPIRIN [ACETYLSALICYLIC ACID] [Suspect]
     Active Substance: ASPIRIN
     Dosage: 600 MILLIGRAM, QD
     Route: 065
  57. LODALIS [Suspect]
     Active Substance: COLESEVELAM HYDROCHLORIDE
     Dosage: 625 MILLIGRAM, QD
     Route: 065
  58. CALCIUM ASCORBATE [Suspect]
     Active Substance: CALCIUM ASCORBATE
     Dosage: 600 MILLIGRAM, QD
     Route: 065
  59. BIOTENE [FLUORINE;XYLITOL] [Suspect]
     Active Substance: SODIUM FLUORIDE\SODIUM MONOFLUOROPHOSPHATE
     Dosage: UNK
     Route: 048
  60. EPREX [Suspect]
     Active Substance: ERYTHROPOIETIN
     Dosage: UNK UNK, QD
     Route: 065
  61. SIMETHICONE (DIMETHICONE) [Suspect]
     Active Substance: DIMETHICONE
     Route: 065
  62. ESTER C [ASCORBIC ACID] [Suspect]
     Active Substance: ASCORBIC ACID
     Dosage: 600 MG, 1X/DAY
     Route: 065
  63. METHYLEPHEDRINE HYDROCHLORIDE [Suspect]
     Active Substance: METHYLEPHEDRINE HYDROCHLORIDE
     Dosage: 81 MILLIGRAM, QD
     Route: 065
  64. HYDROCORTISONE. [Suspect]
     Active Substance: HYDROCORTISONE
     Indication: SCROTAL SWELLING
     Dosage: UNK UNK, WEEKLY
     Route: 065
  65. LOPERAMIDE HYDROCHLORIDE W/SIMETICONE [Suspect]
     Active Substance: DIMETHICONE\LOPERAMIDE HYDROCHLORIDE
     Dosage: UNK
     Route: 048
  66. DEXAMETHASONE. [Suspect]
     Active Substance: DEXAMETHASONE
     Dosage: 4 MILLIGRAM, BID
     Route: 048
  67. DEXAMETHASONE. [Suspect]
     Active Substance: DEXAMETHASONE
     Dosage: 8 MILLIGRAM, QD
     Route: 048
  68. DEXAMETHASONE. [Suspect]
     Active Substance: DEXAMETHASONE
     Dosage: UNK
     Route: 065
  69. REVLIMID [Suspect]
     Active Substance: LENALIDOMIDE
     Indication: PLASMA CELL MYELOMA
     Dosage: 10 MILLIGRAM, QD
     Route: 048
  70. REVLIMID [Suspect]
     Active Substance: LENALIDOMIDE
     Dosage: 10 MILLIGRAM, QD
     Route: 048
  71. REVLIMID [Suspect]
     Active Substance: LENALIDOMIDE
     Dosage: 10 MG
     Route: 048
  72. VITAMIN D3 [Suspect]
     Active Substance: CHOLECALCIFEROL
     Dosage: 1000 INTERNATIONAL UNIT, QD
     Route: 065
     Dates: start: 201710
  73. VITAMIN B12 [Suspect]
     Active Substance: CYANOCOBALAMIN
     Dosage: 1000 MG, 1X/DAY
     Route: 048
  74. ESTER C [ASCORBIC ACID] [Suspect]
     Active Substance: ASCORBIC ACID
     Dosage: 81 MILLIGRAM, QD
     Route: 065
  75. ACETYLSALICYLIC ACID/ASCORBIC ACID [Suspect]
     Active Substance: ACETAMINOPHEN\ASCORBIC ACID
     Dosage: 81 MG, 1X/DAY
     Route: 065
  76. CALCIUM ASCORBATE/SODIUM ASCORBATE/ZINC CITRATE [Suspect]
     Active Substance: CALCIUM ASCORBATE\SODIUM ASCORBATE\ZINC CITRATE
     Dosage: 600 MG, 1X/DAY
     Route: 065
  77. FLUDROCORTISONE [Suspect]
     Active Substance: FLUDROCORTISONE
     Dosage: 0.1 MILLIGRAM
     Route: 065
  78. ZINC. [Suspect]
     Active Substance: ZINC
     Dosage: 600 MILLIGRAM, QD
     Route: 065
  79. MIDODRINE [Suspect]
     Active Substance: MIDODRINE
     Dosage: 5 MILLIGRAM, QD
     Route: 065
  80. FLUDROCORTISONE ACETATE. [Suspect]
     Active Substance: FLUDROCORTISONE ACETATE
     Dosage: 0.1 MG, 1X/DAY
     Route: 048
  81. HYDROCORTISONE ACETATE. [Suspect]
     Active Substance: HYDROCORTISONE ACETATE
     Indication: SCROTAL SWELLING
     Dosage: UNK UNK, 2X/WEEK
     Route: 065
  82. PLANTAGO OVATA [Suspect]
     Active Substance: HERBALS\PLANTAGO OVATA LEAF
     Dosage: UNK UNK, BID
     Route: 065
  83. LOPERAMIDE HYDROCHLORIDE W/SIMETICONE [Suspect]
     Active Substance: DIMETHICONE\LOPERAMIDE HYDROCHLORIDE
     Dosage: UNK
     Route: 065
  84. MIDODRINE HYDROCHLORIDE. [Suspect]
     Active Substance: MIDODRINE HYDROCHLORIDE
     Dosage: 5 MG
     Route: 065
  85. VITAMIN D3 [Suspect]
     Active Substance: CHOLECALCIFEROL
     Dosage: 1000 INTERNATIONAL UNIT, QD
     Route: 065
  86. TUMS [CALCIUM CARBONATE;MAGNESIUM CARBONATE;MAGNESIUM TRISILICATE] [Suspect]
     Active Substance: CALCIUM CARBONATE\MAGNESIUM CARBONATE\MAGNESIUM TRISILICATE
     Dosage: UNK
     Route: 065
  87. PSYLLIUM HUSK [PLANTAGO OVATA HUSK] [Suspect]
     Active Substance: HERBALS\PLANTAGO OVATA SEED COAT
     Dosage: 1 DF, ALTERNATE DAY
     Route: 048
  88. ASCORBIC ACID. [Suspect]
     Active Substance: ASCORBIC ACID
     Dosage: 81 MG, 1X/DAY
     Route: 065
  89. PLANTAGO AFRA [Suspect]
     Active Substance: HERBALS
     Dosage: UNK UNK, ALTERNATE DAY (1 EVERY 2 DAY)
  90. PLANTAGO AFRA [Suspect]
     Active Substance: HERBALS
     Dosage: UNK
  91. CHLORPHENIRAMINE MALEATE. [Suspect]
     Active Substance: CHLORPHENIRAMINE MALEATE
     Dosage: 81 MILLIGRAM, QD
     Route: 065
  92. CLOTRIMAZOLE/SALICYLIC ACID [Suspect]
     Active Substance: CLOTRIMAZOLE\SALICYLIC ACID
     Indication: SCROTAL SWELLING
     Dosage: UNK
     Route: 065
  93. CLOTRIMAZOLE. [Suspect]
     Active Substance: CLOTRIMAZOLE
     Dosage: UNK, 1/WEEK
     Route: 065
  94. PLANTAGO PSYLLIUM [Suspect]
     Active Substance: PLANTAGO INDICA WHOLE
     Dosage: UNK
     Route: 065
  95. PANTOPRAZOLE [Suspect]
     Active Substance: PANTOPRAZOLE
     Dosage: 40 MILLIGRAM, QD
     Route: 048
     Dates: start: 20170626
  96. CLOTRIMAZOLE W/HYDROCORTISONE [Suspect]
     Active Substance: CLOTRIMAZOLE\HYDROCORTISONE
     Dosage: UNK UNK, 1/WEEK
     Route: 065
  97. PSYLLIUM [PLANTAGO AFRA] [Suspect]
     Active Substance: PLANTAGO AFRA SEED
     Dosage: UNK
     Route: 065
  98. DEXAMETHASONE. [Suspect]
     Active Substance: DEXAMETHASONE
     Dosage: 4 MG, UNK
     Route: 065
  99. DEXAMETHASONE. [Suspect]
     Active Substance: DEXAMETHASONE
     Dosage: 4 MG
     Route: 048
     Dates: start: 20170626
  100. REVLIMID [Suspect]
     Active Substance: LENALIDOMIDE
     Dosage: 10 MILLIGRAM, Q4WEEKS
     Route: 048
  101. REVLIMID [Suspect]
     Active Substance: LENALIDOMIDE
     Dosage: 10 MILLIGRAM, QD
     Route: 048
  102. REVLIMID [Suspect]
     Active Substance: LENALIDOMIDE
     Dosage: 10 MG
     Route: 048
  103. VITAMIN B12 [Suspect]
     Active Substance: CYANOCOBALAMIN
     Dosage: UNK, 1X/DAY
     Route: 048
  104. SEA WATER [Suspect]
     Active Substance: SEA WATER
     Dosage: UNK UNK, 3X/DAY
     Route: 047
  105. ASPIRIN [ACETYLSALICYLIC ACID] [Suspect]
     Active Substance: ASPIRIN
     Dosage: 81 MILLIGRAM, QD
     Route: 065
     Dates: start: 20170626
  106. EPREX [Suspect]
     Active Substance: ERYTHROPOIETIN
     Dosage: UNK
     Route: 065
  107. SIMETHICONE (DIMETHICONE) [Suspect]
     Active Substance: DIMETHICONE
     Indication: DIARRHOEA
     Dosage: 120 MG, 3X/DAY
     Route: 065
  108. SIMETHICONE (DIMETHICONE) [Suspect]
     Active Substance: DIMETHICONE
     Dosage: UNK
     Route: 065
  109. CLOTRIMAZOLE. [Suspect]
     Active Substance: CLOTRIMAZOLE
     Indication: SCROTAL SWELLING
     Dosage: UNK
     Route: 065
  110. CYANOCOBALAMIN. [Suspect]
     Active Substance: CYANOCOBALAMIN
     Dosage: 1000 MICROGRAM, QD
     Route: 048
  111. LOPERAMIDE HYDROCHLORIDE W/SIMETICONE [Suspect]
     Active Substance: DIMETHICONE\LOPERAMIDE HYDROCHLORIDE
     Dosage: UNK
     Route: 048
  112. LOPERAMIDE HYDROCHLORIDE W/SIMETICONE [Suspect]
     Active Substance: DIMETHICONE\LOPERAMIDE HYDROCHLORIDE
     Dosage: UNK
     Route: 065
  113. EPOETIN ALFA [Suspect]
     Active Substance: ERYTHROPOIETIN
     Dosage: UNK
     Route: 065
  114. DEXAMETHASONE. [Suspect]
     Active Substance: DEXAMETHASONE
     Dosage: 8 MG, UNK
     Route: 048
  115. REVLIMID [Suspect]
     Active Substance: LENALIDOMIDE
     Dosage: 10 MILLIGRAM, QD
     Route: 048
  116. REVLIMID [Suspect]
     Active Substance: LENALIDOMIDE
     Dosage: 10 MILLIGRAM, QD
     Route: 048
  117. REVLIMID [Suspect]
     Active Substance: LENALIDOMIDE
     Dosage: 10 MILLIGRAM, QD
     Route: 048
     Dates: start: 20170625
  118. VITAMIN B12 [Suspect]
     Active Substance: CYANOCOBALAMIN
     Dosage: 1000 UG, ONCE DAILY
     Route: 048
  119. SEA WATER [Suspect]
     Active Substance: SEA WATER
     Dosage: UNK UNK, 3X/DAY
     Route: 065
  120. ASPIRIN [ACETYLSALICYLIC ACID] [Suspect]
     Active Substance: ASPIRIN
     Dosage: 81 MG, ONCE DAILY
     Route: 065
  121. LODALIS [Suspect]
     Active Substance: COLESEVELAM HYDROCHLORIDE
     Dosage: 625 MILLIGRAM, QD
     Route: 065
     Dates: start: 20180731
  122. GLYCERINE [Suspect]
     Active Substance: GLYCERIN
     Dosage: UNK
     Route: 048
  123. BIOTENE [FLUORINE;XYLITOL] [Suspect]
     Active Substance: SODIUM FLUORIDE\SODIUM MONOFLUOROPHOSPHATE
     Dosage: UNK
     Route: 048
  124. EPREX [Suspect]
     Active Substance: ERYTHROPOIETIN
     Dosage: UNK
     Route: 042
  125. SIMETHICONE (DIMETHICONE) [Suspect]
     Active Substance: DIMETHICONE
     Dosage: UNK
     Route: 065
  126. FLUDROCORTISONE [Suspect]
     Active Substance: FLUDROCORTISONE
     Dosage: 0.1 MG, 1X/DAY
     Route: 065
  127. ASCORBIC ACID. [Suspect]
     Active Substance: ASCORBIC ACID
     Dosage: 600 MG, 1X/DAY
  128. RIBOFLAVIN [Suspect]
     Active Substance: RIBOFLAVIN
     Dosage: 81 MILLIGRAM, QD
     Route: 065
  129. PLANTAGO PSYLLIUM [Suspect]
     Active Substance: PLANTAGO INDICA WHOLE
     Route: 065

REACTIONS (4)
  - Speech disorder [Unknown]
  - Confusional state [Unknown]
  - Disorientation [Unknown]
  - Cerebrovascular accident [Not Recovered/Not Resolved]

NARRATIVE: CASE EVENT DATE: 20181016
